FAERS Safety Report 4960360-X (Version None)
Quarter: 2006Q1

REPORT INFORMATION
  Report Type: 
  Country: None (occurrence: None)
  Receive Date: 20060328
  Receipt Date: 20060316
  Transmission Date: 20060701
  Serious: Yes (Other)
  Sender: FDA-Public Use
  Company Number: 2006038615

PATIENT
  Age: 37 Year
  Sex: Female
  Weight: 89 kg

DRUGS (6)
  1. GENOTROPIN [Suspect]
     Indication: HYPOPITUITARISM
     Dosage: .03 MG (0.3 MG, DAILY), SUBCUTANEOUS
     Route: 058
     Dates: start: 19960920
  2. FLUOXETINE [Concomitant]
  3. ATORVASTATIN CALCIUM [Concomitant]
  4. DESMOPRESSIN ACETATE [Concomitant]
  5. LEVOTHYROXINE SODIUM [Concomitant]
  6. LANSOPRAZOLE [Concomitant]

REACTIONS (2)
  - CRANIOPHARYNGIOMA [None]
  - NEOPLASM PROGRESSION [None]
